FAERS Safety Report 18783313 (Version 2)
Quarter: 2021Q1

REPORT INFORMATION
  Report Type: Spontaneous
  Country: FR (occurrence: FR)
  Receive Date: 20210125
  Receipt Date: 20210212
  Transmission Date: 20210419
  Serious: Yes (Death, Life-Threatening, Other)
  Sender: FDA-Public Use
  Company Number: FR-MYLANLABS-2021M1004863

PATIENT
  Age: 58 Year
  Sex: Male
  Weight: 56 kg

DRUGS (11)
  1. GABAPENTIN. [Suspect]
     Active Substance: GABAPENTIN
     Indication: NEURALGIA
     Dosage: UNK
     Route: 065
  2. GABAPENTIN. [Suspect]
     Active Substance: GABAPENTIN
     Dosage: GABAPENTIN DOSAGE WAS INCREASED
     Route: 065
     Dates: start: 2019
  3. GABAPENTIN. [Suspect]
     Active Substance: GABAPENTIN
     Indication: NEURALGIA
     Dosage: 1 DOSAGE FORM, TID (EVERY 8 HRS)
     Route: 065
     Dates: start: 2017
  4. GABAPENTIN. [Interacting]
     Active Substance: GABAPENTIN
     Indication: DEPRESSION
  5. CODEINE [Interacting]
     Active Substance: CODEINE
     Indication: PRODUCT USED FOR UNKNOWN INDICATION
     Route: 065
  6. GABAPENTIN. [Interacting]
     Active Substance: GABAPENTIN
     Indication: NEURALGIA
     Dosage: 1 DOSAGE FORM, TID (EVERY 8 HRS)
     Route: 065
     Dates: start: 2017
  7. BROMAZEPAM [Interacting]
     Active Substance: BROMAZEPAM
     Indication: PRODUCT USED FOR UNKNOWN INDICATION
     Dosage: 1 DOSAGE FORM, QD, IN EVENING
     Route: 065
  8. GABAPENTIN. [Suspect]
     Active Substance: GABAPENTIN
     Indication: DEPRESSION
     Dosage: GABAPENTIN DOSAGE WAS INCREASED IN....
     Route: 065
     Dates: start: 2017, end: 2018
  9. GABAPENTIN. [Suspect]
     Active Substance: GABAPENTIN
     Dosage: GABAPENTIN DOSAGE WAS INCREASED
     Route: 065
     Dates: start: 2018, end: 2019
  10. PARACETAMOL [Interacting]
     Active Substance: ACETAMINOPHEN
     Indication: PRODUCT USED FOR UNKNOWN INDICATION
     Dosage: 1000 MILLIGRAM AS NEEDED
     Route: 065
  11. GABAPENTIN. [Interacting]
     Active Substance: GABAPENTIN
     Indication: DEPRESSION

REACTIONS (4)
  - Overdose [Fatal]
  - Toxicity to various agents [Fatal]
  - Intentional product misuse [Fatal]
  - Potentiating drug interaction [Fatal]
